FAERS Safety Report 16143864 (Version 5)
Quarter: 2020Q3

REPORT INFORMATION
  Report Type: Spontaneous
  Country: US (occurrence: US)
  Receive Date: 20190401
  Receipt Date: 20200915
  Transmission Date: 20201102
  Serious: Yes (Disabling, Other)
  Sender: FDA-Public Use
  Company Number: US-PFIZER INC-2017520974

PATIENT
  Age: 51 Year
  Sex: Male
  Weight: 70.3 kg

DRUGS (3)
  1. REVATIO [Suspect]
     Active Substance: SILDENAFIL CITRATE
     Indication: CARDIAC FAILURE
     Dosage: 20 MG, 3X/DAY
     Route: 048
     Dates: start: 2016
  2. REVATIO [Suspect]
     Active Substance: SILDENAFIL CITRATE
     Indication: PULMONARY HYPERTENSION
     Dosage: 20 MG, 3X/DAY
     Route: 048
  3. ASPIRIN [ACETYLSALICYLIC ACID] [Concomitant]
     Active Substance: ASPIRIN
     Dosage: UNK (EVERY ONCE IN A WHILE)

REACTIONS (2)
  - Product prescribing error [Unknown]
  - Injury [Recovering/Resolving]

NARRATIVE: CASE EVENT DATE: 201803
